FAERS Safety Report 9931587 (Version 2)
Quarter: 2014Q1

REPORT INFORMATION
  Report Type: Spontaneous
  Country: IN (occurrence: IN)
  Receive Date: 20140228
  Receipt Date: 20140318
  Transmission Date: 20141002
  Serious: Yes (Other)
  Sender: FDA-Public Use
  Company Number: IN-AMGEN-INDSP2014014471

PATIENT
  Sex: Female

DRUGS (4)
  1. XGEVA [Suspect]
     Indication: BREAST CANCER METASTATIC
     Dosage: 120 MG, QD
     Route: 058
  2. ANASTROZOLE [Concomitant]
     Dosage: UNK
     Route: 065
  3. LETROZOLE [Concomitant]
     Dosage: UNK
     Route: 065
  4. CALCIUM [Concomitant]
     Indication: SUPPLEMENTATION THERAPY
     Dosage: UNK

REACTIONS (1)
  - Osteonecrosis of jaw [Unknown]
